FAERS Safety Report 6762312-6 (Version None)
Quarter: 2010Q2

REPORT INFORMATION
  Report Type: 
  Country: None (occurrence: None)
  Receive Date: 20100609
  Receipt Date: 20100526
  Transmission Date: 20101027
  Serious: Yes (Other)
  Sender: FDA-Public Use
  Company Number: PHHY2010FR28790

PATIENT
  Sex: Male

DRUGS (4)
  1. RASILEZ [Suspect]
     Indication: HYPERTENSION
     Dosage: 150 MG DAILY
     Dates: start: 20091112, end: 20100203
  2. RASILEZ [Suspect]
     Dosage: 300 MG
     Dates: start: 20100204, end: 20100428
  3. COMPETACT [Concomitant]
     Indication: DIABETES MELLITUS
     Dosage: 15/850 MG  BID
  4. KARDEGIC [Concomitant]
     Indication: ANTIPLATELET THERAPY
     Dosage: 160 MG

REACTIONS (2)
  - MICROALBUMINURIA [None]
  - WEIGHT INCREASED [None]
